FAERS Safety Report 4466863-9 (Version None)
Quarter: 2004Q3

REPORT INFORMATION
  Report Type: 
  Country: None (occurrence: None)
  Receive Date: 20040928
  Receipt Date: 20040928
  Transmission Date: 20050211
  Serious: Yes (Other)
  Sender: FDA-Public Use
  Company Number: None

PATIENT
  Age: 58 Year
  Sex: Female
  Weight: 80.2867 kg

DRUGS (2)
  1. VICODIN [Suspect]
     Indication: BACK PAIN
     Dosage: BID PO
     Route: 048
     Dates: start: 20010101
  2. VICODIN [Suspect]
     Indication: OSTEOARTHRITIS
     Dosage: BID PO
     Route: 048
     Dates: start: 20010101

REACTIONS (2)
  - DRUG INEFFECTIVE [None]
  - STOMACH DISCOMFORT [None]
